FAERS Safety Report 9663319 (Version 1)
Quarter: 2013Q4

REPORT INFORMATION
  Report Type: Spontaneous
  Country: US (occurrence: US)
  Receive Date: 20131101
  Receipt Date: 20131101
  Transmission Date: 20140711
  Serious: Yes (Other)
  Sender: FDA-Public Use
  Company Number: US-AMGEN-USASP2013076425

PATIENT
  Age: 58 Year
  Sex: Female

DRUGS (5)
  1. PROLIA [Suspect]
     Indication: OSTEOPOROSIS POSTMENOPAUSAL
     Dosage: UNK
     Route: 065
     Dates: start: 201308
  2. PROGESTERONE [Concomitant]
  3. ESTROGEN [Concomitant]
  4. CALCIUM VITAMIN D [Concomitant]
  5. VITAMINS                           /00067501/ [Concomitant]

REACTIONS (3)
  - Rotator cuff syndrome [Unknown]
  - Musculoskeletal pain [Unknown]
  - Middle insomnia [Unknown]
